FAERS Safety Report 12984342 (Version 1)
Quarter: 2016Q4

REPORT INFORMATION
  Report Type: Spontaneous
  Country: US (occurrence: US)
  Receive Date: 20161129
  Receipt Date: 20161129
  Transmission Date: 20170207
  Serious: Yes (Hospitalization, Other)
  Sender: FDA-Public Use
  Company Number: US-MEDA-2016110048

PATIENT
  Age: 9 Year
  Sex: Male

DRUGS (2)
  1. FELBATOL [Suspect]
     Active Substance: FELBAMATE
     Indication: GENERALISED TONIC-CLONIC SEIZURE
     Dosage: 3.3 ML IN THE MORNING AND AFTERNOON, 1.6 ML IN THE EVENING
     Route: 048
  2. ONFI [Suspect]
     Active Substance: CLOBAZAM
     Indication: SEIZURE

REACTIONS (3)
  - Pneumonia [Not Recovered/Not Resolved]
  - Product quality issue [Unknown]
  - Seizure [Unknown]

NARRATIVE: CASE EVENT DATE: 201611
